FAERS Safety Report 9601584 (Version 1)
Quarter: 2013Q4

REPORT INFORMATION
  Report Type: Report from Study
  Country: US (occurrence: US)
  Receive Date: 20131007
  Receipt Date: 20131007
  Transmission Date: 20140711
  Serious: Yes (Death, Other)
  Sender: FDA-Public Use
  Company Number: US-ROCHE-1284598

PATIENT
  Age: 74 Year
  Sex: Male

DRUGS (5)
  1. ALTEPLASE [Suspect]
     Indication: PERIPHERAL ISCHAEMIA
     Route: 065
  2. ALTEPLASE [Suspect]
     Indication: THROMBOSIS
  3. HEPARIN SODIUM [Suspect]
     Indication: ANTICOAGULANT THERAPY
     Dosage: DOSED BASED ON PATIENT WEIGHT
     Route: 065
  4. CLOPIDOGREL BISULFATE [Suspect]
     Indication: ANTIPLATELET THERAPY
     Route: 065
  5. ACETYLSALICYLIC ACID [Suspect]
     Indication: ANTIPLATELET THERAPY
     Route: 065

REACTIONS (4)
  - Brain herniation [Fatal]
  - Haemorrhage intracranial [Unknown]
  - Coagulopathy [Unknown]
  - Haematoma [Unknown]
